FAERS Safety Report 11640945 (Version 3)
Quarter: 2016Q4

REPORT INFORMATION
  Report Type: Spontaneous
  Country: IL (occurrence: IL)
  Receive Date: 20151019
  Receipt Date: 20161222
  Transmission Date: 20170206
  Serious: Yes (Death, Other)
  Sender: FDA-Public Use
  Company Number: IL-BAYER-2015-439081

PATIENT
  Sex: Male

DRUGS (1)
  1. STIVARGA [Suspect]
     Active Substance: REGORAFENIB
     Indication: COLORECTAL CANCER
     Dosage: UNK
     Route: 048

REACTIONS (6)
  - Rash [None]
  - Hepatic failure [Fatal]
  - Hepatic enzyme increased [None]
  - Hepatic cirrhosis [None]
  - Hypertension [None]
  - Hypoglycaemia [Recovered/Resolved]
